FAERS Safety Report 4975439-6 (Version None)
Quarter: 2006Q2

REPORT INFORMATION
  Report Type: 
  Country: None (occurrence: None)
  Receive Date: 20060418
  Receipt Date: 20040414
  Transmission Date: 20061013
  Serious: Yes (Other)
  Sender: FDA-Public Use
  Company Number: US-SANOFI-SYNTHELABO-A03200401166

PATIENT
  Sex: Female

DRUGS (7)
  1. AMBIEN [Suspect]
     Indication: INSOMNIA
     Dosage: UNK
     Route: 048
  2. AMBIEN [Suspect]
     Route: 048
     Dates: start: 20040301, end: 20040301
  3. WELLBUTRIN [Concomitant]
     Dosage: UNK
     Route: 048
  4. TOPAMAX [Concomitant]
     Dosage: UNK
     Route: 048
  5. SYNTHROID [Concomitant]
     Dosage: UNK
     Route: 048
  6. LEXAPRO [Concomitant]
     Dosage: UNK
     Route: 065
  7. KLONOPIN [Concomitant]
     Dosage: NA
     Route: 048

REACTIONS (5)
  - AMNESIA [None]
  - EATING DISORDER [None]
  - HALLUCINATION [None]
  - ROAD TRAFFIC ACCIDENT [None]
  - SLEEP WALKING [None]
